FAERS Safety Report 8776019 (Version 1)
Quarter: 2012Q4

REPORT INFORMATION
  Report Type: 
  Country: DE (occurrence: DE)
  Receive Date: 20120910
  Receipt Date: 20120910
  Transmission Date: 20130627
  Serious: Yes (Hospitalization)
  Sender: FDA-Public Use
  Company Number: DE-PFIZER INC-2012218731

PATIENT
  Age: 64 Year
  Sex: Female
  Weight: 77 kg

DRUGS (5)
  1. GENOTROPIN MINIQUICK [Suspect]
     Dosage: 0.4 mg, 7/wk
     Route: 058
     Dates: start: 20070508
  2. CALCIVIT D [Concomitant]
     Indication: OSTEOPOROSIS
     Dosage: UNK
     Dates: start: 20060208
  3. LEVOTHYROXINE [Concomitant]
     Indication: BLOOD THYROID STIMULATING HORMONE DECREASED
     Dosage: UNK
     Dates: start: 20060208
  4. LEVOTHYROXINE [Concomitant]
     Indication: PRIMARY HYPOTHYROIDISM
  5. HYDROCORTISONE [Concomitant]
     Indication: BLOOD CORTICOTROPHIN DECREASED
     Dosage: UNK
     Dates: start: 20091015

REACTIONS (1)
  - Hypothalamo-pituitary disorder [Unknown]
